FAERS Safety Report 8876975 (Version 1)
Quarter: 2012Q4

REPORT INFORMATION
  Report Type: 
  Country: US (occurrence: US)
  Receive Date: 20121030
  Receipt Date: 20121030
  Transmission Date: 20130627
  Serious: Yes (Other)
  Sender: FDA-Public Use
  Company Number: US-MYLANLABS-2012S1021858

PATIENT
  Age: 57 Year
  Sex: Male

DRUGS (4)
  1. DABIGATRAN ETEXILATE [Suspect]
     Indication: ATRIAL FIBRILLATION
     Route: 065
  2. VERAPAMIL [Interacting]
     Route: 065
  3. ASPIRIN [Concomitant]
     Indication: ATRIAL FIBRILLATION
     Route: 065
  4. FLECAINIDE [Concomitant]
     Route: 065

REACTIONS (4)
  - Carpal tunnel syndrome [Recovered/Resolved]
  - Drug interaction [Recovered/Resolved]
  - Haemorrhage [Recovered/Resolved]
  - Haematoma [Recovered/Resolved]
